FAERS Safety Report 25724264 (Version 1)
Quarter: 2025Q3

REPORT INFORMATION
  Report Type: Report from Study
  Country: US (occurrence: US)
  Receive Date: 20250826
  Receipt Date: 20250826
  Transmission Date: 20251021
  Serious: Yes (Hospitalization, Other)
  Sender: EXELIXIS
  Company Number: US-EXELIXIS-EXL-2025-005616

PATIENT
  Age: 59 Year
  Sex: Male
  Weight: 118 kg

DRUGS (27)
  1. COMETRIQ [Suspect]
     Active Substance: CABOZANTINIB S-MALATE
     Indication: Medullary thyroid cancer
     Dosage: 140 MG, QD (80 MG WITH 3 CAPSULES OF 20 MG OF ONCE DAILY)
     Route: 048
     Dates: start: 20250128
  2. COMETRIQ [Suspect]
     Active Substance: CABOZANTINIB S-MALATE
     Dosage: 100 MG, QD
     Route: 048
  3. BUPRENORPHINE [Concomitant]
     Active Substance: BUPRENORPHINE
  4. HYDROMORPHONE HCL [Concomitant]
     Active Substance: HYDROMORPHONE HYDROCHLORIDE
  5. SPIRONOLACTONE [Concomitant]
     Active Substance: SPIRONOLACTONE
  6. LOSARTAN POTASSIUM [Concomitant]
     Active Substance: LOSARTAN POTASSIUM
  7. MIRALAX [Concomitant]
     Active Substance: POLYETHYLENE GLYCOL 3350
  8. ZYRTEC [Concomitant]
     Active Substance: CETIRIZINE HYDROCHLORIDE
  9. SENOKOT [Concomitant]
     Active Substance: SENNOSIDES
  10. CHOLECALCIFEROL [Concomitant]
     Active Substance: CHOLECALCIFEROL
  11. ZOLOFT [Concomitant]
     Active Substance: SERTRALINE HYDROCHLORIDE
  12. METFORMIN HYDROCHLORIDE [Concomitant]
     Active Substance: METFORMIN HYDROCHLORIDE
  13. LEVOTHYROXINE SODIUM [Concomitant]
     Active Substance: LEVOTHYROXINE SODIUM
  14. HYDROCHLOROTHIAZIDE [Concomitant]
     Active Substance: HYDROCHLOROTHIAZIDE
  15. GLIPIZIDE [Concomitant]
     Active Substance: GLIPIZIDE
  16. GEMFIBROZIL [Concomitant]
     Active Substance: GEMFIBROZIL
  17. VITAMINS [Concomitant]
     Active Substance: VITAMINS
  18. NARCAN [Concomitant]
     Active Substance: NALOXONE HYDROCHLORIDE
  19. AMITRIPTYLINE HYDROCHLORIDE [Concomitant]
     Active Substance: AMITRIPTYLINE HYDROCHLORIDE
  20. ELIQUIS [Concomitant]
     Active Substance: APIXABAN
  21. CLONAZEPAM [Concomitant]
     Active Substance: CLONAZEPAM
  22. LYRICA [Concomitant]
     Active Substance: PREGABALIN
  23. ONDANSETRON HYDROCHLORIDE [Concomitant]
     Active Substance: ONDANSETRON HYDROCHLORIDE
  24. IMODIUM A-D [Concomitant]
     Active Substance: LOPERAMIDE HYDROCHLORIDE
  25. OMEPRAZOLE [Concomitant]
     Active Substance: OMEPRAZOLE
  26. FLONASE ALLERGY RELIEF [Concomitant]
     Active Substance: FLUTICASONE PROPIONATE
  27. DULOXETINE HYDROCHLORIDE [Concomitant]
     Active Substance: DULOXETINE HYDROCHLORIDE

REACTIONS (8)
  - Oxygen saturation decreased [Not Recovered/Not Resolved]
  - Back disorder [Not Recovered/Not Resolved]
  - Illness [Unknown]
  - Hospitalisation [Unknown]
  - Abdominal distension [Not Recovered/Not Resolved]
  - Flatulence [Not Recovered/Not Resolved]
  - Bowel movement irregularity [Not Recovered/Not Resolved]
  - Hair colour changes [Not Recovered/Not Resolved]

NARRATIVE: CASE EVENT DATE: 20250201
